FAERS Safety Report 4375445-9 (Version None)
Quarter: 2004Q2

REPORT INFORMATION
  Report Type: 
  Country: None (occurrence: None)
  Receive Date: 20040607
  Receipt Date: 20040601
  Transmission Date: 20050107
  Serious: Yes (Hospitalization)
  Sender: FDA-Public Use
  Company Number: 2004216365US

PATIENT
  Age: 51 Year
  Sex: Female

DRUGS (9)
  1. BEXTRA [Suspect]
     Indication: ARTHRITIS
     Dosage: 10 MG, QD
     Dates: start: 20040501, end: 20040501
  2. VICODIN [Concomitant]
  3. EPIVIR [Concomitant]
  4. KEPPRA [Concomitant]
  5. VIREAD [Concomitant]
  6. PREVACID [Concomitant]
  7. MORPHINE [Concomitant]
  8. LOPINAVIR (LOPINAVIR) [Concomitant]
  9. DIFLUCAN [Concomitant]

REACTIONS (8)
  - ANAEMIA [None]
  - DIFFICULTY IN WALKING [None]
  - DYSPNOEA [None]
  - HYPOGLYCAEMIA [None]
  - MUSCLE SPASMS [None]
  - OEDEMA PERIPHERAL [None]
  - PAIN IN EXTREMITY [None]
  - SWELLING FACE [None]
